FAERS Safety Report 9587859 (Version 2)
Quarter: 2014Q1

REPORT INFORMATION
  Report Type: Spontaneous
  Country: GB (occurrence: GB)
  Receive Date: 20131003
  Receipt Date: 20140205
  Transmission Date: 20141002
  Serious: Yes (Life-Threatening, Hospitalization, Other)
  Sender: FDA-Public Use
  Company Number: GB-WATSON-2013-17426

PATIENT
  Age: 75 Year
  Sex: Male
  Weight: 86 kg

DRUGS (6)
  1. ALLOPURINOL (UNKNOWN) [Suspect]
     Indication: GOUT
     Dosage: 100 MG, QPM
     Route: 048
     Dates: start: 20130604, end: 20130614
  2. LISINOPRIL [Concomitant]
     Indication: HYPERTENSION
     Dosage: 20 MG, DAILY
     Route: 048
     Dates: start: 20130604
  3. OMEPRAZOLE [Concomitant]
     Indication: PRODUCT USED FOR UNKNOWN INDICATION
     Dosage: 20 MG, DAILY
     Route: 048
     Dates: start: 20130617
  4. PREDNISOLONE [Concomitant]
     Indication: PRODUCT USED FOR UNKNOWN INDICATION
     Dosage: 5 MG, SIX TIMES DAILY
     Route: 048
     Dates: start: 20130617
  5. NAPROXEN [Concomitant]
     Indication: PRODUCT USED FOR UNKNOWN INDICATION
     Dosage: 250-500MG DOSES, TWICE DAILY
     Route: 048
     Dates: start: 20130617
  6. SIMVASTATIN [Concomitant]
     Indication: HYPERCHOLESTEROLAEMIA
     Dosage: 1 DF, QPM
     Route: 048
     Dates: start: 20130720

REACTIONS (6)
  - Meningitis aseptic [Recovered/Resolved]
  - Cerebrovascular accident [Recovered/Resolved]
  - Headache [Recovered/Resolved]
  - Spinal pain [Recovered/Resolved]
  - Pain in extremity [Recovered/Resolved]
  - Peripheral coldness [Recovered/Resolved]
